FAERS Safety Report 7919887-0 (Version None)
Quarter: 2011Q4

REPORT INFORMATION
  Report Type: 
  Country: None (occurrence: None)
  Receive Date: 20111117
  Receipt Date: 20111107
  Transmission Date: 20120403
  Serious: Yes (Other)
  Sender: FDA-Public Use
  Company Number: US-BAYER-2011-108095

PATIENT
  Sex: Female

DRUGS (4)
  1. YASMIN [Suspect]
     Indication: OESTROGEN THERAPY
  2. YASMIN [Suspect]
     Indication: PROGESTIN THERAPY
  3. YASMIN [Suspect]
     Indication: CONTRACEPTION
     Dosage: UNK
     Dates: start: 20040101, end: 20060101
  4. YASMIN [Suspect]
     Indication: MENSTRUATION IRREGULAR

REACTIONS (6)
  - POST CHOLECYSTECTOMY SYNDROME [None]
  - ANXIETY [None]
  - ANHEDONIA [None]
  - GALLBLADDER DISORDER [None]
  - INJURY [None]
  - PAIN [None]
